FAERS Safety Report 4309046-5 (Version None)
Quarter: 2004Q1

REPORT INFORMATION
  Report Type: 
  Country: None (occurrence: None)
  Receive Date: 20040226
  Receipt Date: 20030612
  Transmission Date: 20041129
  Serious: Yes (Death)
  Sender: FDA-Public Use
  Company Number: 030612-PM0063-00

PATIENT
  Age: 22 Year
  Sex: 0

DRUGS (3)
  1. DESOXYN [Suspect]
     Dosage: P.O.
     Route: 048
     Dates: end: 20010101
  2. OXYCODONE [Suspect]
     Dosage: P.O.
     Route: 048
     Dates: end: 20010101
  3. CLONAZEPAM [Suspect]
     Dosage: P.O.
     Route: 048
     Dates: end: 20010101

REACTIONS (1)
  - INTENTIONAL MISUSE [None]
